FAERS Safety Report 24912894 (Version 1)
Quarter: 2025Q1

REPORT INFORMATION
  Report Type: Spontaneous
  Country: US (occurrence: US)
  Receive Date: 20250201
  Receipt Date: 20250201
  Transmission Date: 20250409
  Serious: No
  Sender: GLENMARK
  Company Number: US-GLENMARK PHARMACEUTICALS-2024GMK096763

PATIENT

DRUGS (1)
  1. RYALTRIS [Suspect]
     Active Substance: MOMETASONE FUROATE MONOHYDRATE\OLOPATADINE HYDROCHLORIDE
     Indication: Chronic sinusitis
     Dosage: UNK, BID (INSTILL 1 SPRAY INTO EACH NOSTRIL TWICE A DAY)
     Route: 045
     Dates: start: 20241121

REACTIONS (3)
  - Product use in unapproved indication [None]
  - Device physical property issue [Unknown]
  - Device delivery system issue [Unknown]
